FAERS Safety Report 6737917-9 (Version None)
Quarter: 2010Q2

REPORT INFORMATION
  Report Type: 
  Country: None (occurrence: None)
  Receive Date: 20100524
  Receipt Date: 20100517
  Transmission Date: 20101027
  Serious: Yes (Other)
  Sender: FDA-Public Use
  Company Number: AU-ROCHE-684969

PATIENT
  Age: 20 Year
  Sex: Male

DRUGS (2)
  1. TRETINOIN [Suspect]
     Route: 065
  2. ARA-C [Suspect]
     Route: 065

REACTIONS (1)
  - CYTOGENETIC ABNORMALITY [None]
